FAERS Safety Report 19803754 (Version 1)
Quarter: 2021Q3

REPORT INFORMATION
  Report Type: Spontaneous
  Country: US (occurrence: US)
  Receive Date: 20210908
  Receipt Date: 20210908
  Transmission Date: 20211014
  Serious: No
  Sender: FDA-Public Use
  Company Number: US-LUPIN PHARMACEUTICALS INC.-2021-16361

PATIENT
  Age: 35 Year
  Sex: Male

DRUGS (6)
  1. PHENELZINE [Suspect]
     Active Substance: PHENELZINE
     Dosage: 45 MILLIGRAM, QD (IN TWO DIVIDED DOSES; THERAPY STOPPED AFTER 6 WEEKS)
     Route: 065
  2. SERTRALINE [Suspect]
     Active Substance: SERTRALINE HYDROCHLORIDE
     Indication: OBSESSIVE-COMPULSIVE DISORDER
     Dosage: 200 MILLIGRAM
     Route: 065
  3. PHENELZINE [Suspect]
     Active Substance: PHENELZINE
     Indication: OBSESSIVE-COMPULSIVE DISORDER
     Dosage: 15 MILLIGRAM, BID
     Route: 065
  4. CLOMIPRAMINE [Suspect]
     Active Substance: CLOMIPRAMINE
     Indication: OBSESSIVE-COMPULSIVE DISORDER
     Dosage: 250 MILLIGRAM
     Route: 065
  5. FLUOXETINE [Suspect]
     Active Substance: FLUOXETINE HYDROCHLORIDE
     Indication: OBSESSIVE-COMPULSIVE DISORDER
     Dosage: 100 MILLIGRAM
     Route: 065
  6. FLUVOXAMINE [Suspect]
     Active Substance: FLUVOXAMINE
     Indication: OBSESSIVE-COMPULSIVE DISORDER
     Dosage: 300 MILLIGRAM
     Route: 065

REACTIONS (4)
  - Drug ineffective for unapproved indication [Unknown]
  - Drug resistance [Unknown]
  - Off label use [Unknown]
  - Orthostatic hypertension [Unknown]
